FAERS Safety Report 4759262-3 (Version None)
Quarter: 2005Q3

REPORT INFORMATION
  Report Type: 
  Country: None (occurrence: None)
  Receive Date: 20050831
  Receipt Date: 20050825
  Transmission Date: 20060218
  Serious: Yes (Other)
  Sender: FDA-Public Use
  Company Number: 2005-08-1752

PATIENT
  Age: 40 Year
  Sex: Male

DRUGS (1)
  1. NASONEX [Suspect]
     Dosage: NASAL SPRAY

REACTIONS (1)
  - CATARACT OPERATION [None]
